FAERS Safety Report 15635428 (Version 4)
Quarter: 2019Q2

REPORT INFORMATION
  Report Type: Report from Study
  Country: None (occurrence: NL)
  Receive Date: 20181120
  Receipt Date: 20190619
  Transmission Date: 20190711
  Serious: Yes (Other)
  Sender: FDA-Public Use
  Company Number: NL-ABBVIE-18S-114-2557661-00

PATIENT
  Sex: Male
  Weight: 83 kg

DRUGS (2)
  1. DUODOPA [Suspect]
     Active Substance: CARBIDOPA\LEVODOPA
     Indication: PARKINSON^S DISEASE
     Dosage: MD: 13.0, CD: 3.4, ED: 4.0
     Route: 050
     Dates: start: 20170620
  2. MOVICOLON [Concomitant]
     Active Substance: POLYETHYLENE GLYCOL 3350\POTASSIUM CHLORIDE\SODIUM BICARBONATE\SODIUM CHLORIDE
     Indication: PRODUCT USED FOR UNKNOWN INDICATION

REACTIONS (25)
  - Hypoacusis [Not Recovered/Not Resolved]
  - Stoma site discharge [Recovered/Resolved]
  - Loss of consciousness [Not Recovered/Not Resolved]
  - Fibroma [Not Recovered/Not Resolved]
  - Memory impairment [Not Recovered/Not Resolved]
  - Somnolence [Recovered/Resolved]
  - Overweight [Not Recovered/Not Resolved]
  - Abnormal dreams [Not Recovered/Not Resolved]
  - Dementia [Not Recovered/Not Resolved]
  - Cognitive disorder [Not Recovered/Not Resolved]
  - Hypophagia [Not Recovered/Not Resolved]
  - Syncope [Not Recovered/Not Resolved]
  - Stoma site pain [Not Recovered/Not Resolved]
  - Poor quality sleep [Not Recovered/Not Resolved]
  - Aggression [Not Recovered/Not Resolved]
  - Dyskinesia [Not Recovered/Not Resolved]
  - Urinary retention [Not Recovered/Not Resolved]
  - Tension [Not Recovered/Not Resolved]
  - Hypotension [Not Recovered/Not Resolved]
  - Hallucination [Not Recovered/Not Resolved]
  - Urinary incontinence [Not Recovered/Not Resolved]
  - Orthostatic hypotension [Not Recovered/Not Resolved]
  - Blood glucose fluctuation [Not Recovered/Not Resolved]
  - Bradykinesia [Recovered/Resolved]
  - Tremor [Recovered/Resolved]
